FAERS Safety Report 8883383 (Version 1)
Quarter: 2012Q4

REPORT INFORMATION
  Report Type: 
  Country: CA (occurrence: CA)
  Receive Date: 20121102
  Receipt Date: 20121102
  Transmission Date: 20130627
  Serious: Yes (Hospitalization, Other)
  Sender: FDA-Public Use
  Company Number: CA-PFIZER INC-2012267848

PATIENT
  Age: 55 Year
  Sex: Male

DRUGS (2)
  1. CELEBREX [Suspect]
     Dosage: 100 mg, 1x/day
  2. COZAAR [Concomitant]
     Dosage: UNK

REACTIONS (5)
  - Arteriosclerosis coronary artery [Unknown]
  - Cirrhosis alcoholic [Unknown]
  - Thrombocytopenia [Unknown]
  - Iron deficiency anaemia [Unknown]
  - Gastritis [Unknown]
